FAERS Safety Report 12991529 (Version 1)
Quarter: 2016Q4

REPORT INFORMATION
  Report Type: Spontaneous
  Country: US (occurrence: US)
  Receive Date: 20161201
  Receipt Date: 20161201
  Transmission Date: 20170207
  Serious: No
  Sender: FDA-Public Use
  Company Number: US-ENDO PHARMACEUTICALS INC.-2016-002689

PATIENT
  Age: 49 Year
  Sex: Female
  Weight: 59.93 kg

DRUGS (1)
  1. ALPRAZOLAM TABLETS 0.5 MG [Suspect]
     Active Substance: ALPRAZOLAM
     Indication: ANXIETY
     Dosage: 1-2 TABLETS 2-3 TIMES A DAY BUT TAKES IT ONCE AT NIGHT
     Route: 048
     Dates: start: 20160311

REACTIONS (3)
  - Furuncle [Not Recovered/Not Resolved]
  - Somnolence [Not Recovered/Not Resolved]
  - Drug ineffective [Not Recovered/Not Resolved]

NARRATIVE: CASE EVENT DATE: 20160312
